FAERS Safety Report 7549135-5 (Version None)
Quarter: 2011Q2

REPORT INFORMATION
  Report Type: 
  Country: None (occurrence: None)
  Receive Date: 20110615
  Receipt Date: 20110602
  Transmission Date: 20111010
  Serious: Yes (Other)
  Sender: FDA-Public Use
  Company Number: PHFR2011GB01222

PATIENT
  Sex: Female

DRUGS (4)
  1. NICOTINE [Concomitant]
     Dosage: UNK
  2. SERTRALINE HYDROCHLORIDE [Concomitant]
     Indication: OBSESSIVE-COMPULSIVE DISORDER
     Dosage: 100 MG, QD ON
     Route: 048
     Dates: start: 20100601
  3. CLOZAPINE [Suspect]
     Dates: start: 20101024
  4. CLOZAPINE [Suspect]
     Indication: SCHIZOPHRENIA
     Dosage: 400 MG, QD ON
     Route: 048
     Dates: start: 20061212

REACTIONS (3)
  - THINKING ABNORMAL [None]
  - ANXIETY [None]
  - SALIVARY HYPERSECRETION [None]
